FAERS Safety Report 10511413 (Version 8)
Quarter: 2015Q4

REPORT INFORMATION
  Report Type: Report from Study
  Country: US (occurrence: US)
  Receive Date: 20141010
  Receipt Date: 20151026
  Transmission Date: 20160304
  Serious: Yes (Other)
  Sender: FDA-Public Use
  Company Number: US-ALEXION-A201403890

PATIENT
  Age: 68 Year
  Sex: Female

DRUGS (5)
  1. SOLIRIS [Suspect]
     Active Substance: ECULIZUMAB
     Indication: PAROXYSMAL NOCTURNAL HAEMOGLOBINURIA
     Dosage: UNK
     Route: 042
  2. INFLUENZA VACCINE [Suspect]
     Active Substance: INFLUENZA VIRUS VACCINE
     Indication: IMMUNISATION
     Dosage: UNK
     Route: 065
     Dates: start: 20151013, end: 20151013
  3. XARELTO [Concomitant]
     Active Substance: RIVAROXABAN
     Indication: PRODUCT USED FOR UNKNOWN INDICATION
     Dosage: UNK
     Route: 065
     Dates: start: 20150403
  4. SOLIRIS [Suspect]
     Active Substance: ECULIZUMAB
     Dosage: 1200 MG, UNK
     Route: 042
  5. PNEUMOVAX 23 [Suspect]
     Active Substance: PNEUMOCOCCAL VACCINE, POLYVALENT 23
     Indication: IMMUNISATION
     Dosage: UNK
     Route: 065
     Dates: start: 20151013, end: 20151013

REACTIONS (15)
  - Blood lactate dehydrogenase increased [Not Recovered/Not Resolved]
  - Pyrexia [Unknown]
  - Blood iron decreased [Not Recovered/Not Resolved]
  - Malaise [Unknown]
  - Pain [Recovered/Resolved]
  - Upper respiratory tract infection [Recovering/Resolving]
  - Thrombosis [Unknown]
  - Blood lactate dehydrogenase abnormal [Unknown]
  - Pyrexia [Not Recovered/Not Resolved]
  - Fatigue [Unknown]
  - Ligament rupture [Not Recovered/Not Resolved]
  - Pain [Unknown]
  - Lower respiratory tract infection [Not Recovered/Not Resolved]
  - Pyrexia [Recovered/Resolved]
  - Fall [Unknown]

NARRATIVE: CASE EVENT DATE: 2014
